FAERS Safety Report 11319034 (Version 1)
Quarter: 2015Q3

REPORT INFORMATION
  Report Type: Spontaneous
  Country: US (occurrence: None)
  Receive Date: 20150727
  Receipt Date: 20150727
  Transmission Date: 20151125
  Serious: Yes (Other)
  Sender: FDA-Public Use
  Company Number: None

PATIENT
  Age: 53 Year
  Sex: Male
  Weight: 77.11 kg

DRUGS (1)
  1. KEPPRA [Suspect]
     Active Substance: LEVETIRACETAM
     Indication: GENERALISED TONIC-CLONIC SEIZURE
     Dosage: 1 TABLET, TWICE DAILY, TAKEN BY MOUTH
     Route: 048
     Dates: start: 201411

REACTIONS (14)
  - Rhinorrhoea [None]
  - Dry mouth [None]
  - Discomfort [None]
  - Restlessness [None]
  - Dysphonia [None]
  - Faeces discoloured [None]
  - Nausea [None]
  - Insomnia [None]
  - Abdominal pain [None]
  - Balance disorder [None]
  - Pulmonary congestion [None]
  - Pruritus [None]
  - Rash erythematous [None]
  - Faeces soft [None]

NARRATIVE: CASE EVENT DATE: 20141103
